FAERS Safety Report 5684779-7 (Version None)
Quarter: 2008Q1

REPORT INFORMATION
  Report Type: 
  Country: None (occurrence: None)
  Receive Date: 20080328
  Receipt Date: 20070912
  Transmission Date: 20080703
  Serious: Yes (Other)
  Sender: FDA-Public Use
  Company Number: US-BRISTOL-MYERS SQUIBB COMPANY-13907332

PATIENT
  Age: 70 Year
  Sex: Female

DRUGS (6)
  1. ERBITUX [Suspect]
     Indication: NEOPLASM MALIGNANT
     Route: 042
     Dates: start: 20070912, end: 20070912
  2. ALOXI [Concomitant]
  3. DEXAMETHASONE ACETATE [Concomitant]
  4. ZANTAC [Concomitant]
  5. EMEND [Concomitant]
  6. CISPLATIN [Concomitant]

REACTIONS (6)
  - ASTHENIA [None]
  - BLOOD PRESSURE DECREASED [None]
  - INFUSION RELATED REACTION [None]
  - MUSCLE SPASMS [None]
  - OXYGEN SATURATION DECREASED [None]
  - PRURITUS [None]
